FAERS Safety Report 16657667 (Version 1)
Quarter: 2019Q3

REPORT INFORMATION
  Report Type: Spontaneous
  Country: US (occurrence: US)
  Receive Date: 20190801
  Receipt Date: 20190801
  Transmission Date: 20191004
  Serious: No
  Sender: FDA-Public Use
  Company Number: US-SEBELA IRELAND LIMITED-2019SEB00011

PATIENT
  Sex: Male

DRUGS (1)
  1. PAROXETINE. [Suspect]
     Active Substance: PAROXETINE
     Indication: OBSESSIVE-COMPULSIVE DISORDER
     Dosage: UNK

REACTIONS (3)
  - Product substitution issue [Recovered/Resolved]
  - Obsessive-compulsive disorder [Recovered/Resolved]
  - Drug ineffective [Recovered/Resolved]
